FAERS Safety Report 19517560 (Version 1)
Quarter: 2021Q3

REPORT INFORMATION
  Report Type: Spontaneous
  Country: GB (occurrence: GB)
  Receive Date: 20210712
  Receipt Date: 20210712
  Transmission Date: 20211014
  Serious: Yes (Other)
  Sender: FDA-Public Use
  Company Number: GB-TEVA-2021-GB-1931263

PATIENT
  Age: 48 Year
  Sex: Female

DRUGS (2)
  1. COPAXONE [Suspect]
     Active Substance: GLATIRAMER ACETATE
     Indication: RELAPSING-REMITTING MULTIPLE SCLEROSIS
     Route: 065
     Dates: start: 2010, end: 201612
  2. FINGOLIMOD. [Suspect]
     Active Substance: FINGOLIMOD
     Indication: RELAPSING-REMITTING MULTIPLE SCLEROSIS
     Route: 065
     Dates: start: 201612, end: 201902

REACTIONS (5)
  - Hepatitis C [Recovered/Resolved]
  - Injection site reaction [Unknown]
  - Infection reactivation [Recovered/Resolved]
  - JC virus infection [Unknown]
  - Lymphopenia [Recovered/Resolved]

NARRATIVE: CASE EVENT DATE: 2019
